FAERS Safety Report 19913187 (Version 1)
Quarter: 2021Q4

REPORT INFORMATION
  Report Type: Spontaneous
  Country: CA (occurrence: CA)
  Receive Date: 20211004
  Receipt Date: 20211004
  Transmission Date: 20220303
  Serious: Yes (Other)
  Sender: FDA-Public Use
  Company Number: 2021A756865

PATIENT
  Age: 74 Year
  Sex: Male
  Weight: 97 kg

DRUGS (1)
  1. OMEPRAZOLE [Suspect]
     Active Substance: OMEPRAZOLE
     Indication: Gastrooesophageal reflux disease
     Dosage: 20 MG20.0MG UNKNOWN
     Route: 065

REACTIONS (5)
  - Heart rate increased [Unknown]
  - Hypertension [Unknown]
  - Rash [Unknown]
  - Dyspnoea [Unknown]
  - Product substitution issue [Unknown]
